FAERS Safety Report 4575046-3 (Version None)
Quarter: 2005Q1

REPORT INFORMATION
  Report Type: 
  Country: None (occurrence: None)
  Receive Date: 20050208
  Receipt Date: 20040909
  Transmission Date: 20050727
  Serious: Yes (Death, Hospitalization)
  Sender: FDA-Public Use
  Company Number: FR-SANOFI-SYNTHELABO-F01200402762

PATIENT
  Sex: Female
  Weight: 55 kg

DRUGS (2)
  1. FLUOROURACIL [Suspect]
     Dosage: 250 MG/M2/DAY, 7 DAYS A WEEK FOR 5 WEEK
     Route: 042
     Dates: end: 20040827
  2. OXALIPLATIN [Suspect]
     Route: 042
     Dates: start: 20040827, end: 20040827

REACTIONS (14)
  - ANOREXIA [None]
  - BLOOD POTASSIUM DECREASED [None]
  - BLOOD SODIUM DECREASED [None]
  - COMA [None]
  - DYSPHAGIA [None]
  - GENERAL PHYSICAL HEALTH DETERIORATION [None]
  - HEPATIC FAILURE [None]
  - HYPERGLYCAEMIA [None]
  - METASTASES TO ABDOMINAL CAVITY [None]
  - OEDEMA PERIPHERAL [None]
  - OESOPHAGITIS [None]
  - PLATELET COUNT DECREASED [None]
  - TONGUE ULCERATION [None]
  - WEIGHT DECREASED [None]
